FAERS Safety Report 25270874 (Version 1)
Quarter: 2025Q2

REPORT INFORMATION
  Report Type: Spontaneous
  Country: CN (occurrence: CN)
  Receive Date: 20250506
  Receipt Date: 20250506
  Transmission Date: 20250716
  Serious: Yes (Hospitalization, Other)
  Sender: ALEXION PHARMACEUTICALS
  Company Number: CN-ASTRAZENECA-202504CHN026626CN

PATIENT
  Age: 69 Year
  Weight: 55 kg

DRUGS (8)
  1. BRILINTA [Suspect]
     Active Substance: TICAGRELOR
     Indication: Thrombosis
     Dosage: 90 MILLIGRAM, BID
  2. INDOBUFEN [Suspect]
     Active Substance: INDOBUFEN
     Indication: Thrombosis
     Dosage: 100 MILLIGRAM, BID
  3. CARBAZOCHROME SODIUM SULFONATE [Concomitant]
     Active Substance: CARBAZOCHROME SODIUM SULFONATE
     Dosage: 80 MILLIGRAM, QD, IVGTT
  4. ESOMEPRAZOLE SODIUM [Concomitant]
     Active Substance: ESOMEPRAZOLE SODIUM
     Dosage: 80 MILLIGRAM, BID, PUMPED
  5. SOMATOSTATIN [Concomitant]
     Active Substance: SOMATOSTATIN
     Dosage: 3 MILLIGRAM, BID, PUMPED
     Route: 065
  6. ISOSORBIDE DINITRATE [Concomitant]
     Active Substance: ISOSORBIDE DINITRATE
     Route: 065
  7. METOPROLOL [Concomitant]
     Active Substance: METOPROLOL
  8. ATORVASTATIN [Concomitant]
     Active Substance: ATORVASTATIN
     Route: 065

REACTIONS (8)
  - Upper gastrointestinal haemorrhage [Recovering/Resolving]
  - Faeces discoloured [Recovered/Resolved]
  - Nausea [Unknown]
  - Gastrooesophageal reflux disease [Unknown]
  - Fatigue [Unknown]
  - Chest discomfort [Unknown]
  - Angina pectoris [Unknown]
  - Gingival discomfort [Unknown]
